FAERS Safety Report 5410290-4 (Version None)
Quarter: 2007Q3

REPORT INFORMATION
  Report Type: 
  Country: None (occurrence: None)
  Receive Date: 20070808
  Receipt Date: 20070727
  Transmission Date: 20080115
  Serious: Yes (Hospitalization)
  Sender: FDA-Public Use
  Company Number: HP200700073

PATIENT
  Sex: Male

DRUGS (2)
  1. PANAFIL(PAPAIN, UREA, CHLOROPHYLLIN SODIUM COPPER COMPLEX) OINTMENT [Suspect]
  2. DAKIN'S COLUTION(CHLORINATED SODA SOLUTION) SOLUTION [Suspect]
     Indication: SKIN ODOUR ABNORMAL

REACTIONS (1)
  - CELLULITIS [None]
